FAERS Safety Report 5599789-8 (Version None)
Quarter: 2008Q1

REPORT INFORMATION
  Report Type: 
  Country: None (occurrence: None)
  Receive Date: 20080123
  Receipt Date: 20080116
  Transmission Date: 20080703
  Serious: Yes (Hospitalization, Other)
  Sender: FDA-Public Use
  Company Number: HQWYE764006DEC04

PATIENT
  Sex: Male
  Weight: 81.6 kg

DRUGS (3)
  1. SIROLIMUS [Suspect]
     Indication: PROPHYLAXIS AGAINST TRANSPLANT REJECTION
     Route: 048
     Dates: start: 20040920
  2. CELLCEPT [Suspect]
     Indication: IMMUNOSUPPRESSANT DRUG THERAPY
     Route: 065
     Dates: end: 20041122
  3. CELLCEPT [Suspect]
     Route: 065
     Dates: start: 20041123

REACTIONS (3)
  - DEHYDRATION [None]
  - DIARRHOEA [None]
  - URINARY TRACT INFECTION [None]
